FAERS Safety Report 9714794 (Version 2)
Quarter: 2013Q4

REPORT INFORMATION
  Report Type: Spontaneous
  Country: FR (occurrence: FR)
  Receive Date: 20131126
  Receipt Date: 20131230
  Transmission Date: 20140711
  Serious: Yes (Life-Threatening, Other)
  Sender: FDA-Public Use
  Company Number: FR-ACTAVIS-2013-22004

PATIENT
  Age: 19 Year
  Sex: Male

DRUGS (10)
  1. PARACETAMOL W/PROPOXYPHENE [Suspect]
     Indication: PRODUCT USED FOR UNKNOWN INDICATION
     Dosage: 10 DF, TOTAL; DF=TABLET
     Route: 065
  2. FLAGYL /00012501/ [Suspect]
     Indication: PRODUCT USED FOR UNKNOWN INDICATION
     Dosage: 4 DF, TOTAL; DF=TABLET
  3. TRIMEBUTINE [Suspect]
     Indication: PRODUCT USED FOR UNKNOWN INDICATION
     Dosage: 30 DF, TOTAL; DF= TABLET
     Route: 065
  4. PARACETAMOL [Suspect]
     Indication: PRODUCT USED FOR UNKNOWN INDICATION
     Dosage: 8 DF, TOTAL; DF=TABLET
     Route: 065
  5. DOMPERIDONE (UNKNOWN) [Suspect]
     Indication: PRODUCT USED FOR UNKNOWN INDICATION
     Dosage: 20 DF, TOTAL; DF=TABLET
     Route: 065
  6. CETIRIZINE [Suspect]
     Indication: PRODUCT USED FOR UNKNOWN INDICATION
     Dosage: 5 DF, TOTAL; DF=TABLET
     Route: 065
  7. IBUPROFEN [Suspect]
     Indication: PRODUCT USED FOR UNKNOWN INDICATION
     Dosage: 10 DF, TOTAL; DF=TABLET
     Route: 065
  8. AERIUS /01398501/ [Suspect]
     Indication: PRODUCT USED FOR UNKNOWN INDICATION
     Dosage: 20 DF, TOTAL; DF=TABLET
     Route: 065
  9. RHINADVIL [Suspect]
     Indication: PRODUCT USED FOR UNKNOWN INDICATION
     Dosage: 20 DF, TOTAL; DF=TABLET
     Route: 065
  10. CELESTAMINE                        /00252801/ [Concomitant]
     Indication: PRODUCT USED FOR UNKNOWN INDICATION
     Dosage: 30 DF, TOTAL; DF=TABLET
     Route: 065

REACTIONS (10)
  - Coma [Unknown]
  - Miosis [Unknown]
  - Convulsion [Unknown]
  - Hyperhidrosis [Unknown]
  - Heart rate increased [Unknown]
  - Blood pressure increased [Unknown]
  - Electrocardiogram QRS complex prolonged [Unknown]
  - Electrocardiogram QT prolonged [Unknown]
  - Blood potassium decreased [Unknown]
  - Overdose [Unknown]
